FAERS Safety Report 13138540 (Version 1)
Quarter: 2017Q1

REPORT INFORMATION
  Report Type: Spontaneous
  Country: PL (occurrence: PL)
  Receive Date: 20170123
  Receipt Date: 20170123
  Transmission Date: 20170428
  Serious: Yes (Life-Threatening, Disabling)
  Sender: FDA-Public Use
  Company Number: PHHY2017PL007975

PATIENT
  Age: 73 Year
  Sex: Female
  Weight: 62 kg

DRUGS (3)
  1. MEKINIST [Suspect]
     Active Substance: TRAMETINIB DIMETHYL SULFOXIDE
     Indication: METASTATIC MALIGNANT MELANOMA
     Dosage: 2 MG, QD
     Route: 048
     Dates: start: 201610, end: 20170109
  2. TAFINLAR [Suspect]
     Active Substance: DABRAFENIB MESYLATE
     Indication: METASTATIC MALIGNANT MELANOMA
     Dosage: 150 MG, BID
     Route: 048
     Dates: start: 201609, end: 20170109
  3. PABI-DEXAMETHASON [Concomitant]
     Indication: METASTATIC MALIGNANT MELANOMA
     Dosage: 6 MG (6 MG TO 4MG)
     Route: 048
     Dates: start: 201608

REACTIONS (7)
  - Decreased appetite [Unknown]
  - Dementia [Unknown]
  - Muscular weakness [Unknown]
  - Stupor [Unknown]
  - Dysphagia [Unknown]
  - Speech disorder [Unknown]
  - Oligodipsia [Unknown]

NARRATIVE: CASE EVENT DATE: 20170105
